FAERS Safety Report 7486316-3 (Version None)
Quarter: 2011Q2

REPORT INFORMATION
  Report Type: 
  Country: None (occurrence: None)
  Receive Date: 20110517
  Receipt Date: 20110505
  Transmission Date: 20111010
  Serious: Yes (Hospitalization, Other)
  Sender: FDA-Public Use
  Company Number: US-CEPHALON-2010002621

PATIENT
  Sex: Female
  Weight: 45 kg

DRUGS (16)
  1. FENTORA [Suspect]
     Route: 002
     Dates: end: 20101113
  2. PHENOBARBITAL TAB [Concomitant]
     Indication: CONVULSION
     Dates: start: 20010101
  3. ACTONEL [Concomitant]
     Indication: OSTEOPOROSIS
     Dates: start: 20100101
  4. PREMARIN [Concomitant]
     Indication: HORMONE REPLACEMENT THERAPY
     Dates: start: 19970101
  5. 5HTP [Concomitant]
     Indication: INSOMNIA
     Dates: start: 20070101
  6. VITAMIN TAB [Concomitant]
     Indication: VITAMIN SUPPLEMENTATION
  7. DILTIAZEM [Concomitant]
     Indication: BLOOD PRESSURE
  8. ACTONEL [Concomitant]
     Indication: FIBROMYALGIA
  9. FENTORA [Suspect]
     Indication: BACK PAIN
     Route: 002
     Dates: start: 20100426
  10. FENTORA [Suspect]
     Route: 002
     Dates: end: 20101113
  11. PERCOCET [Concomitant]
     Indication: FIBROMYALGIA
     Dates: start: 20010101
  12. FIORICET [Concomitant]
     Indication: HEADACHE
     Dates: start: 19930101
  13. MELATONIN [Concomitant]
     Indication: INSOMNIA
     Dates: start: 20040101
  14. 5HTP [Concomitant]
     Indication: FIBROMYALGIA
  15. FENTORA [Suspect]
     Indication: FIBROMYALGIA
     Route: 002
     Dates: end: 20090701
  16. PAXIL [Concomitant]
     Indication: ANXIETY
     Dates: start: 20020101

REACTIONS (14)
  - SOMNOLENCE [None]
  - DRUG DEPENDENCE [None]
  - COGNITIVE DISORDER [None]
  - DRUG INEFFECTIVE FOR UNAPPROVED INDICATION [None]
  - COUGH [None]
  - DRUG PRESCRIBING ERROR [None]
  - THINKING ABNORMAL [None]
  - DIZZINESS [None]
  - INTENTIONAL DRUG MISUSE [None]
  - WITHDRAWAL SYNDROME [None]
  - NAUSEA [None]
  - DYSPNOEA [None]
  - HEAD DISCOMFORT [None]
  - PANIC ATTACK [None]
